FAERS Safety Report 7412160-9 (Version None)
Quarter: 2011Q2

REPORT INFORMATION
  Report Type: 
  Country: None (occurrence: None)
  Receive Date: 20110413
  Receipt Date: 20110405
  Transmission Date: 20111010
  Serious: Yes (Hospitalization)
  Sender: FDA-Public Use
  Company Number: IT-TEVA-275388ISR

PATIENT
  Sex: Female

DRUGS (3)
  1. FLUOROURACIL [Suspect]
     Indication: COLON CANCER
     Dosage: 1700 MILLIGRAM;
     Route: 042
     Dates: start: 20100901, end: 20100915
  2. BEVACIZUMAB [Suspect]
     Indication: COLON CANCER
     Dosage: 350 MILLIGRAM;
     Route: 042
     Dates: start: 20100901, end: 20100915
  3. IRINOTECAN [Suspect]
     Indication: COLON CANCER
     Dosage: 300 MILLIGRAM;
     Route: 042
     Dates: start: 20100901, end: 20100915

REACTIONS (2)
  - POST PROCEDURAL FISTULA [None]
  - ABDOMINAL ABSCESS [None]
